FAERS Safety Report 8100210-6 (Version None)
Quarter: 2012Q1

REPORT INFORMATION
  Report Type: 
  Country: None (occurrence: None)
  Receive Date: 20120131
  Receipt Date: 20120127
  Transmission Date: 20120608
  Serious: Yes (Death, Hospitalization)
  Sender: FDA-Public Use
  Company Number: UG-ABBOTT-12P-165-0895252-00

PATIENT
  Age: 36 Year
  Sex: Female

DRUGS (4)
  1. LAMIVUDINE [Concomitant]
     Indication: HIV INFECTION
     Dates: start: 20110411, end: 20120122
  2. LOPINAVIR/RITONAVIR [Suspect]
     Indication: HIV INFECTION
     Route: 048
     Dates: start: 20110411, end: 20120122
  3. TENOFOVIR DISOPROSIL FUMARATE (VIREAD) [Concomitant]
     Indication: HIV INFECTION
     Dates: start: 20110411, end: 20120122
  4. DICLOFENAC [Concomitant]
     Indication: SINUSITIS

REACTIONS (3)
  - ACUTE SINUSITIS [None]
  - NEUROLOGICAL SYMPTOM [None]
  - MATERNAL DEATH AFFECTING FOETUS [None]
